FAERS Safety Report 19427437 (Version 4)
Quarter: 2022Q1

REPORT INFORMATION
  Report Type: Report from Study
  Country: US (occurrence: US)
  Receive Date: 20210617
  Receipt Date: 20220128
  Transmission Date: 20220424
  Serious: No
  Sender: FDA-Public Use
  Company Number: NVSC2021US131391

PATIENT
  Sex: Female

DRUGS (3)
  1. TABRECTA [Suspect]
     Active Substance: CAPMATINIB
     Indication: Non-small cell lung cancer metastatic
     Dosage: 400 MG, UNKNOWN
     Route: 065
  2. TABRECTA [Suspect]
     Active Substance: CAPMATINIB
     Indication: Lung neoplasm malignant
     Dosage: 150 MG, BID
     Route: 048
     Dates: start: 202106
  3. TABRECTA [Suspect]
     Active Substance: CAPMATINIB
     Dosage: 300 MG, BID
     Route: 048
     Dates: start: 202106

REACTIONS (7)
  - Oropharyngeal discomfort [Unknown]
  - Swelling of eyelid [Unknown]
  - Diarrhoea [Unknown]
  - Liver function test abnormal [Unknown]
  - Peripheral swelling [Unknown]
  - Oedema peripheral [Unknown]
  - Fluid retention [Not Recovered/Not Resolved]
